FAERS Safety Report 4468233-6 (Version None)
Quarter: 2004Q4

REPORT INFORMATION
  Report Type: 
  Country: None (occurrence: None)
  Receive Date: 20041007
  Receipt Date: 20040928
  Transmission Date: 20050328
  Serious: Yes (Hospitalization)
  Sender: FDA-Public Use
  Company Number: PHEH2004US10443

PATIENT
  Age: 70 Year
  Sex: Female

DRUGS (7)
  1. ZELNORM [Suspect]
     Indication: IRRITABLE BOWEL SYNDROME
     Dosage: 6 MG, QD
     Route: 048
  2. LOTENSIN [Concomitant]
  3. SYNTHROID [Concomitant]
  4. PREVACID [Concomitant]
  5. DECADRON [Concomitant]
  6. LUMIGAN [Concomitant]
  7. TYLENOL [Concomitant]

REACTIONS (5)
  - CSF TEST ABNORMAL [None]
  - FALL [None]
  - HEADACHE [None]
  - MENINGITIS [None]
  - VERTIGO [None]
